FAERS Safety Report 6613553-X (Version None)
Quarter: 2010Q1

REPORT INFORMATION
  Report Type: 
  Country: None (occurrence: None)
  Receive Date: 20100224
  Receipt Date: 20081230
  Transmission Date: 20100710
  Serious: Yes (Other)
  Sender: FDA-Public Use
  Company Number: WAES 0901USA00029

PATIENT
  Sex: Male

DRUGS (4)
  1. ZOCOR [Suspect]
     Dosage: PO
     Route: 048
  2. PAMELOR [Concomitant]
  3. TYLENOL-500 [Concomitant]
  4. ASPIRIN [Concomitant]

REACTIONS (4)
  - ARTHRALGIA [None]
  - BLOOD CHOLESTEROL INCREASED [None]
  - PAIN IN EXTREMITY [None]
  - RHABDOMYOLYSIS [None]
